FAERS Safety Report 8402086-6 (Version None)
Quarter: 2012Q2

REPORT INFORMATION
  Report Type: 
  Country: None (occurrence: None)
  Receive Date: 20120601
  Receipt Date: 20120528
  Transmission Date: 20120825
  Serious: Yes (Hospitalization, Other)
  Sender: FDA-Public Use
  Company Number: PHHY2012BR046733

PATIENT
  Sex: Female
  Weight: 58 kg

DRUGS (1)
  1. DIOVAN [Suspect]
     Indication: HYPERTENSION
     Dosage: 1 TABLET, DAILY

REACTIONS (2)
  - HYPERTHYROIDISM [None]
  - BREAST CANCER [None]
